FAERS Safety Report 6036528-0 (Version None)
Quarter: 2009Q1

REPORT INFORMATION
  Report Type: 
  Country: None (occurrence: None)
  Receive Date: 20090114
  Receipt Date: 20090107
  Transmission Date: 20090719
  Serious: Yes (Other)
  Sender: FDA-Public Use
  Company Number: US-ASTRAZENECA-2009UW00462

PATIENT
  Age: 78 Year
  Sex: Male
  Weight: 62.1 kg

DRUGS (13)
  1. CRESTOR [Suspect]
     Route: 048
  2. NIASPAN [Suspect]
     Indication: BLOOD CHOLESTEROL INCREASED
     Dosage: 500MG
     Route: 048
     Dates: start: 19980101
  3. NIASPAN [Suspect]
     Dosage: 2000MG
     Route: 048
     Dates: start: 19980101
  4. ACETYLSALICYLIC ACID [Concomitant]
  5. ISOSORBIDE MONONITRATE [Concomitant]
  6. FOLIC ACID [Concomitant]
  7. NITROGLYCERIN [Concomitant]
     Indication: CHEST PAIN
     Dosage: 0.4MG PRN
     Route: 060
  8. MULTI-VITAMIN [Concomitant]
     Dosage: 1 TABLET DAILY
     Route: 048
  9. ALPRAZOLAM [Concomitant]
  10. AMLODIPINE [Concomitant]
     Route: 048
  11. FUROSEMIDE [Concomitant]
     Route: 048
  12. CHONDROITIN WITH GLUCOSAMINE [Concomitant]
     Route: 048
  13. LISINOPRIL [Concomitant]
     Route: 048

REACTIONS (5)
  - CORONARY ARTERIAL STENT INSERTION [None]
  - DIARRHOEA [None]
  - FLUSHING [None]
  - MYALGIA [None]
  - RENAL FAILURE [None]
